FAERS Safety Report 8789286 (Version 1)
Quarter: 2012Q4

REPORT INFORMATION
  Report Type: Spontaneous
  Country: US (occurrence: None)
  Receive Date: 20120910
  Receipt Date: 20120910
  Transmission Date: 20130627
  Serious: Yes (Other)
  Sender: FDA-Public Use
  Company Number: None

PATIENT
  Age: 53 Year
  Sex: Female
  Weight: 68.04 kg

DRUGS (2)
  1. SERTRALINE [Suspect]
     Route: 048
     Dates: start: 20120905, end: 20120905
  2. AMITRIPTYLINE [Suspect]
     Route: 048
     Dates: start: 20120710, end: 20120904

REACTIONS (1)
  - Serotonin syndrome [None]
